FAERS Safety Report 14915580 (Version 1)
Quarter: 2018Q2

REPORT INFORMATION
  Report Type: Spontaneous
  Country: US (occurrence: US)
  Receive Date: 20180518
  Receipt Date: 20180518
  Transmission Date: 20180711
  Serious: Yes (Other)
  Sender: FDA-Public Use
  Company Number: US-ANIPHARMA-2018-US-008201

PATIENT
  Age: 86 Year
  Sex: Female
  Weight: 74.84 kg

DRUGS (14)
  1. GLUCOPHAGE [Concomitant]
     Active Substance: METFORMIN HYDROCHLORIDE
  2. ATORVASTATIN [Concomitant]
     Active Substance: ATORVASTATIN
  3. COUMADIN [Concomitant]
     Active Substance: WARFARIN SODIUM
  4. ARIMIDEX [Suspect]
     Active Substance: ANASTROZOLE
     Dosage: 1 ONCE DAILY
     Route: 048
     Dates: end: 20180515
  5. AMLODIPINE [Concomitant]
     Active Substance: AMLODIPINE BESYLATE
  6. CENTRUM SILVER MULTIVITAMIN [Concomitant]
  7. TRAMADOL. [Concomitant]
     Active Substance: TRAMADOL
     Dosage: USED PRN FOR PAIN
  8. CALCIUM [Concomitant]
     Active Substance: CALCIUM
     Dosage: 600 MG TWICE DAILY
  9. FOLIC ACID. [Concomitant]
     Active Substance: FOLIC ACID
  10. FOSAMAX [Concomitant]
     Active Substance: ALENDRONATE SODIUM
     Dosage: ONCE WEEKLY
  11. GLIMEPIRIDE. [Concomitant]
     Active Substance: GLIMEPIRIDE
  12. JANUVIA [Concomitant]
     Active Substance: SITAGLIPTIN PHOSPHATE
  13. LISINOPRIL. [Concomitant]
     Active Substance: LISINOPRIL
  14. METOPROLOL. [Concomitant]
     Active Substance: METOPROLOL

REACTIONS (3)
  - Metastasis [Unknown]
  - Drug ineffective [Unknown]
  - Recurrent cancer [Unknown]

NARRATIVE: CASE EVENT DATE: 201804
